FAERS Safety Report 16851140 (Version 1)
Quarter: 2019Q3

REPORT INFORMATION
  Report Type: Spontaneous
  Country: US (occurrence: US)
  Receive Date: 20190925
  Receipt Date: 20190925
  Transmission Date: 20191005
  Serious: No
  Sender: FDA-Public Use
  Company Number: US-PFIZER INC-2019406918

PATIENT
  Age: 78 Year
  Sex: Female
  Weight: 68.4 kg

DRUGS (1)
  1. PROPANOLOL HCL [Suspect]
     Active Substance: PROPRANOLOL HYDROCHLORIDE
     Indication: BLOOD PRESSURE ABNORMAL
     Dosage: 80 MG, UNK

REACTIONS (1)
  - Drug ineffective [Unknown]
